FAERS Safety Report 8321351-4 (Version None)
Quarter: 2012Q2

REPORT INFORMATION
  Report Type: 
  Country: None (occurrence: None)
  Receive Date: 20120430
  Receipt Date: 20120418
  Transmission Date: 20120825
  Serious: Yes (Hospitalization)
  Sender: FDA-Public Use
  Company Number: DE-INCYTE CORPORATION-2012IN000676

PATIENT

DRUGS (2)
  1. INC424 [Suspect]
     Dosage: 35 MG, UNK
     Route: 048
     Dates: start: 20120319, end: 20120418
  2. ASPIRIN [Suspect]
     Indication: PROPHYLAXIS
     Dosage: 100 MG, UNK

REACTIONS (1)
  - ABDOMINAL WALL HAEMORRHAGE [None]
